FAERS Safety Report 4400478-3 (Version None)
Quarter: 2004Q3

REPORT INFORMATION
  Report Type: 
  Country: None (occurrence: None)
  Receive Date: 20040714
  Receipt Date: 20040629
  Transmission Date: 20050211
  Serious: Yes (Other)
  Sender: FDA-Public Use
  Company Number: USA030740751

PATIENT
  Age: 83 Year
  Sex: Female
  Weight: 52 kg

DRUGS (16)
  1. FORTEO [Suspect]
     Indication: OSTEOPOROSIS
     Dosage: 20 UG DAY
     Dates: start: 20030701
  2. OMEPRAZOLE [Concomitant]
  3. OSCAL 500-D [Concomitant]
  4. IMDUR [Concomitant]
  5. LIPITOR [Concomitant]
  6. ASPIRIN [Concomitant]
  7. ATENOLOL [Concomitant]
  8. GARLIC [Concomitant]
  9. POTASSIUM [Concomitant]
  10. LASIX [Concomitant]
  11. NEURONTIN [Concomitant]
  12. SLO-MAG (MAGNESIUM CHLORIDE ANHYDROUS) [Concomitant]
  13. ALLBEE C-800 [Concomitant]
  14. FOSAMAX [Concomitant]
  15. RELAFEN [Concomitant]
  16. NITROGLYCERIN [Concomitant]

REACTIONS (23)
  - ARTERIAL OCCLUSIVE DISEASE [None]
  - ASTHENIA [None]
  - CATARACT [None]
  - CONDITION AGGRAVATED [None]
  - CORONARY ARTERY OCCLUSION [None]
  - DIFFICULTY IN WALKING [None]
  - GLAUCOMA [None]
  - HAEMATOMA [None]
  - HAEMORRHAGE SUBCUTANEOUS [None]
  - INJECTION SITE HAEMORRHAGE [None]
  - MEDICAL DEVICE COMPLICATION [None]
  - MEDICATION ERROR [None]
  - MUSCLE CRAMP [None]
  - MUSCULAR WEAKNESS [None]
  - OEDEMA PERIPHERAL [None]
  - PAIN IN EXTREMITY [None]
  - PHARMACEUTICAL PRODUCT COMPLAINT [None]
  - POST PROCEDURAL COMPLICATION [None]
  - SKIN INDURATION [None]
  - SOMNOLENCE [None]
  - THROMBOSIS [None]
  - TREMOR [None]
  - VASCULAR OCCLUSION [None]
